FAERS Safety Report 4769955-X (Version None)
Quarter: 2005Q3

REPORT INFORMATION
  Report Type: 
  Country: None (occurrence: None)
  Receive Date: 20050914
  Receipt Date: 20050908
  Transmission Date: 20060218
  Serious: Yes (Other)
  Sender: FDA-Public Use
  Company Number: TUK2005A00064

PATIENT
  Age: 52 Year
  Sex: Male

DRUGS (1)
  1. ACTOS [Suspect]
     Indication: DIABETES MELLITUS NON-INSULIN-DEPENDENT
     Dosage: 15 MG , ORAL
     Route: 048
     Dates: start: 20020101

REACTIONS (2)
  - PAROTID GLAND ENLARGEMENT [None]
  - PROTEINURIA [None]
